FAERS Safety Report 18760944 (Version 1)
Quarter: 2021Q1

REPORT INFORMATION
  Report Type: Spontaneous
  Country: JP (occurrence: JP)
  Receive Date: 20210119
  Receipt Date: 20210119
  Transmission Date: 20210419
  Serious: Yes (Death, Other)
  Sender: FDA-Public Use
  Company Number: JP-TOLMAR, INC.-21JP024944

PATIENT
  Age: 53 Year
  Sex: Male

DRUGS (4)
  1. RADIOTHERAPY [Suspect]
     Active Substance: RADIATION THERAPY
     Indication: NON-SMALL CELL LUNG CANCER
     Dosage: UNK
     Route: 065
     Dates: start: 20200528
  2. CARBOPLATIN. [Suspect]
     Active Substance: CARBOPLATIN
     Indication: NON-SMALL CELL LUNG CANCER
     Dosage: UNK
     Route: 065
     Dates: start: 202005
  3. TS?1 [Suspect]
     Active Substance: GIMERACIL\OTERACIL\TEGAFUR
     Indication: NON-SMALL CELL LUNG CANCER
     Dosage: UNK
     Route: 065
     Dates: start: 202005
  4. ACYCLOVIR. [Suspect]
     Active Substance: ACYCLOVIR
     Indication: HERPES ZOSTER
     Dosage: 750 MG, QD
     Route: 042

REACTIONS (4)
  - Lung squamous cell carcinoma metastatic [Unknown]
  - Respiratory failure [Fatal]
  - Non-small cell lung cancer [Fatal]
  - Pleural effusion [Fatal]

NARRATIVE: CASE EVENT DATE: 202006
